FAERS Safety Report 5450652-2 (Version None)
Quarter: 2007Q3

REPORT INFORMATION
  Report Type: 
  Country: None (occurrence: None)
  Receive Date: 20070910
  Receipt Date: 20070904
  Transmission Date: 20080115
  Serious: Yes (Other)
  Sender: FDA-Public Use
  Company Number: 2007AL003646

PATIENT
  Age: 84 Year
  Sex: Male

DRUGS (6)
  1. LOVASTATIN [Suspect]
  2. KETOCONAZOLE [Concomitant]
  3. LEUPRORELIN [Concomitant]
  4. BICALUTAMIDE [Concomitant]
  5. HYDROCORTISONE [Concomitant]
  6. ORAL HYPOGLYCEMIC AGENTS [Concomitant]

REACTIONS (6)
  - DRUG INEFFECTIVE [None]
  - EXPOSURE TO COMMUNICABLE DISEASE [None]
  - HEPATIC STEATOSIS [None]
  - HEPATITIS [None]
  - METASTASES TO BONE [None]
  - RHABDOMYOLYSIS [None]
